FAERS Safety Report 10140202 (Version 1)
Quarter: 2014Q2

REPORT INFORMATION
  Report Type: Spontaneous
  Country: CO (occurrence: CO)
  Receive Date: 20140429
  Receipt Date: 20140429
  Transmission Date: 20141212
  Serious: Yes (Other)
  Sender: FDA-Public Use
  Company Number: CO-PFIZER INC-2014115202

PATIENT
  Age: 62 Year
  Sex: 0

DRUGS (1)
  1. DETRUSITOL SR [Suspect]
     Dosage: UNK

REACTIONS (1)
  - Hypokalaemia [Unknown]
